FAERS Safety Report 9543933 (Version 1)
Quarter: 2013Q2

REPORT INFORMATION
  Report Type: Spontaneous
  Country: US (occurrence: None)
  Receive Date: 20130524
  Receipt Date: 20130524
  Transmission Date: 20140414
  Serious: Yes (Other)
  Sender: FDA-Public Use
  Company Number: PHEH2013US001229

PATIENT
  Age: 71 Year
  Sex: Male

DRUGS (1)
  1. GILENYA (FINGOLIMOD) [Suspect]
     Indication: RELAPSING-REMITTING MULTIPLE SCLEROSIS
     Route: 048
     Dates: start: 20130108

REACTIONS (2)
  - Atrioventricular block first degree [None]
  - Heart rate decreased [None]
